FAERS Safety Report 8388586-6 (Version None)
Quarter: 2012Q2

REPORT INFORMATION
  Report Type: 
  Country: None (occurrence: None)
  Receive Date: 20120525
  Receipt Date: 20120518
  Transmission Date: 20120825
  Serious: Yes (Congenital Anomaly, Other)
  Sender: FDA-Public Use
  Company Number: US-FRI-1000025151

PATIENT
  Sex: Male
  Weight: 3 kg

DRUGS (1)
  1. CELEXA [Suspect]
     Indication: DEPRESSION
     Dosage: 60 MG
     Route: 064
     Dates: end: 20010920

REACTIONS (3)
  - AUTISM [None]
  - ASTHMA [None]
  - DEVELOPMENTAL DELAY [None]
